FAERS Safety Report 9215199 (Version 3)
Quarter: 2013Q3

REPORT INFORMATION
  Report Type: Spontaneous
  Country: JP (occurrence: JP)
  Receive Date: 20130405
  Receipt Date: 20130827
  Transmission Date: 20140515
  Serious: Yes (Hospitalization, Other)
  Sender: FDA-Public Use
  Company Number: JP-ELI_LILLY_AND_COMPANY-JP201303009005

PATIENT
  Age: 86 Year
  Sex: Female
  Weight: 60 kg

DRUGS (7)
  1. GEMZAR [Suspect]
     Indication: MALIGNANT NEOPLASM OF AMPULLA OF VATER
     Dosage: 800 MG, UNK
     Route: 042
     Dates: start: 20120607
  2. GEMZAR [Suspect]
     Dosage: 1200 MG, UNK
     Route: 042
     Dates: start: 20120906
  3. GEMZAR [Suspect]
     Dosage: 1000 MG, UNK
     Route: 042
     Dates: start: 20121004, end: 20121115
  4. CISPLATIN [Concomitant]
     Indication: MALIGNANT NEOPLASM OF AMPULLA OF VATER
     Dosage: 25 MG, UNK
     Route: 042
     Dates: start: 20120607
  5. CISPLATIN [Concomitant]
     Dosage: 20 MG, UNK
     Route: 042
     Dates: start: 20120712
  6. GRANISETRON [Concomitant]
     Indication: PROPHYLAXIS
     Dosage: 3 MG, UNK
  7. DEXART [Concomitant]
     Indication: PROPHYLAXIS
     Dosage: 6.6 MG, UNK

REACTIONS (15)
  - Ascites [Not Recovered/Not Resolved]
  - Hypoalbuminaemia [Not Recovered/Not Resolved]
  - Pancreatitis chronic [Unknown]
  - Disseminated intravascular coagulation [Unknown]
  - Pancreatic insufficiency [Unknown]
  - Metastases to lung [Unknown]
  - Pancytopenia [Recovered/Resolved]
  - Pancytopenia [Recovered/Resolved]
  - Oropharyngeal pain [Unknown]
  - Upper respiratory tract inflammation [Unknown]
  - Back pain [Unknown]
  - Pancytopenia [Recovered/Resolved]
  - Diarrhoea [Recovering/Resolving]
  - Malaise [Recovering/Resolving]
  - Cough [Unknown]
